FAERS Safety Report 9626946 (Version 1)
Quarter: 2013Q4

REPORT INFORMATION
  Report Type: Spontaneous
  Country: US (occurrence: None)
  Receive Date: 20131011
  Receipt Date: 20131011
  Transmission Date: 20140711
  Serious: Yes (Death)
  Sender: FDA-Public Use
  Company Number: 2013AP008596

PATIENT
  Age: 38 Year
  Sex: Male

DRUGS (7)
  1. AMLODIPINE BESYLATE TABLETS [Suspect]
     Route: 048
  2. DICLOFENAC [Suspect]
     Route: 048
  3. HALOPERIDOL [Suspect]
     Route: 048
  4. ALPRAZOLAM [Suspect]
     Route: 048
  5. VENLAFAXINE [Suspect]
     Route: 048
  6. TRIAMTERENE [Suspect]
     Route: 048
  7. ACETAMINOPHEN W/HYDROCODONE BITARTRATE [Suspect]
     Route: 048

REACTIONS (1)
  - Completed suicide [None]
